FAERS Safety Report 23549595 (Version 1)
Quarter: 2024Q1

REPORT INFORMATION
  Report Type: Spontaneous
  Country: US (occurrence: None)
  Receive Date: 20240220
  Receipt Date: 20240220
  Transmission Date: 20240410
  Serious: Yes (Death)
  Sender: FDA-Public Use
  Company Number: None

PATIENT
  Age: 65 Year
  Sex: Male

DRUGS (1)
  1. SOFOSBUVIR [Suspect]
     Active Substance: SOFOSBUVIR
     Indication: Antiphospholipid antibodies
     Dosage: FREQUENCY : DAILY;?
     Route: 048
     Dates: start: 20231227

REACTIONS (1)
  - Death [None]

NARRATIVE: CASE EVENT DATE: 20240111
